FAERS Safety Report 9015205 (Version 1)
Quarter: 2013Q1

REPORT INFORMATION
  Report Type: Spontaneous
  Country: US (occurrence: None)
  Receive Date: 20130109
  Receipt Date: 20130109
  Transmission Date: 20140127
  Serious: Yes (Life-Threatening)
  Sender: FDA-Public Use
  Company Number: None

PATIENT
  Sex: Female
  Weight: 72.58 kg

DRUGS (1)
  1. LIOTHYRONINE? 25 MCG MYLAN [Suspect]
     Dosage: 50MCG 2X EACH AM PO
     Route: 048
     Dates: start: 20121211, end: 20121231

REACTIONS (3)
  - Palpitations [None]
  - Hypertension [None]
  - Renal pain [None]
